FAERS Safety Report 7660861 (Version 5)
Quarter: 2013Q1

REPORT INFORMATION
  Report Type: Spontaneous
  Country: US (occurrence: US)
  Receive Date: 20101109
  Receipt Date: 20130131
  Transmission Date: 20140127
  Serious: Yes (Hospitalization, Other)
  Sender: FDA-Public Use
  Company Number: US-BIOGENIDEC-2010BI038336

PATIENT
  Age: 50 None
  Sex: Female

DRUGS (2)
  1. AVONEX [Suspect]
     Indication: MULTIPLE SCLEROSIS
     Route: 030
     Dates: start: 20031007, end: 20040331
  2. AVONEX [Suspect]
     Indication: MULTIPLE SCLEROSIS
     Route: 030
     Dates: start: 20090117

REACTIONS (6)
  - Surgery [Recovered/Resolved]
  - Impaired healing [Recovered/Resolved]
  - Debridement [Recovered/Resolved]
  - Wound infection [Recovered/Resolved]
  - Thyroid function test abnormal [Recovered/Resolved]
  - Convulsion [Recovered/Resolved]
